FAERS Safety Report 8397253-4 (Version None)
Quarter: 2012Q2

REPORT INFORMATION
  Report Type: 
  Country: None (occurrence: None)
  Receive Date: 20120531
  Receipt Date: 20120522
  Transmission Date: 20120825
  Serious: Yes (Other)
  Sender: FDA-Public Use
  Company Number: US-AMGEN-USASP2012032281

PATIENT
  Age: 88 Year
  Sex: Female

DRUGS (2)
  1. ARANESP [Suspect]
     Indication: RENAL FAILURE CHRONIC
     Dosage: UNK
     Dates: start: 20091001
  2. SENSIPAR [Suspect]
     Indication: DIALYSIS
     Dosage: 90 MG, QD
     Route: 048
     Dates: start: 20100101

REACTIONS (7)
  - AGITATION [None]
  - NAUSEA [None]
  - BLOOD CALCIUM ABNORMAL [None]
  - VOMITING [None]
  - DEMENTIA [None]
  - RESTLESSNESS [None]
  - THROMBOSIS IN DEVICE [None]
